FAERS Safety Report 8167142-9 (Version None)
Quarter: 2012Q1

REPORT INFORMATION
  Report Type: 
  Country: None (occurrence: None)
  Receive Date: 20120227
  Receipt Date: 20120216
  Transmission Date: 20120608
  Serious: Yes (Hospitalization)
  Sender: FDA-Public Use
  Company Number: US-ACTELION-A-NJ2011-59082

PATIENT

DRUGS (3)
  1. REVATIO [Concomitant]
  2. COUMADIN [Concomitant]
  3. TRACLEER [Suspect]
     Indication: PULMONARY ARTERIAL HYPERTENSION
     Dosage: UNK
     Route: 048
     Dates: start: 20080204

REACTIONS (3)
  - APPLICATION SITE INDURATION [None]
  - ADMINISTRATION SITE PAIN [None]
  - OEDEMA PERIPHERAL [None]
